FAERS Safety Report 15969924 (Version 1)
Quarter: 2019Q1

REPORT INFORMATION
  Report Type: Report from Study
  Country: US (occurrence: US)
  Receive Date: 20190215
  Receipt Date: 20190215
  Transmission Date: 20190418
  Serious: Yes (Hospitalization, Other)
  Sender: FDA-Public Use
  Company Number: US-AMAG PHARMACEUTICALS, INC.-AMAG201800838

PATIENT

DRUGS (5)
  1. DICLEGIS [Concomitant]
     Active Substance: DOXYLAMINE SUCCINATE\PYRIDOXINE HYDROCHLORIDE
     Indication: NAUSEA
     Dosage: 20 MG, UNK
     Route: 065
     Dates: start: 20171108
  2. MAKENA [Suspect]
     Active Substance: HYDROXYPROGESTERONE CAPROATE
     Indication: PREMATURE DELIVERY
     Dosage: 250 MG/ML, WEEKLY
     Route: 030
     Dates: start: 20171220, end: 20180123
  3. PRENATAL VITAMINS [Concomitant]
     Active Substance: VITAMINS
     Indication: PREGNANCY
     Dosage: 250 MG, UNK
     Route: 065
     Dates: start: 20171004
  4. ASPIRIN. [Concomitant]
     Active Substance: ASPIRIN
     Indication: HABITUAL ABORTION
     Dosage: 81 MG, UNK
     Dates: start: 20171108
  5. ZOFRAN [Concomitant]
     Active Substance: ONDANSETRON HYDROCHLORIDE
     Indication: NAUSEA
     Dosage: 2 MG, PRN
     Route: 065
     Dates: start: 20171107

REACTIONS (2)
  - Vaginal haemorrhage [Recovered/Resolved]
  - Premature delivery [Recovered/Resolved]

NARRATIVE: CASE EVENT DATE: 20180127
